FAERS Safety Report 6539001-6 (Version None)
Quarter: 2010Q1

REPORT INFORMATION
  Report Type: 
  Country: None (occurrence: None)
  Receive Date: 20100115
  Receipt Date: 20100114
  Transmission Date: 20100710
  Serious: Yes (Hospitalization)
  Sender: FDA-Public Use
  Company Number: US-B.I. PHARMACEUTICALS,INC./RIDGEFIELD-2009-BP-13979BP

PATIENT
  Sex: Female

DRUGS (13)
  1. SPIRIVA [Suspect]
     Indication: CHRONIC OBSTRUCTIVE PULMONARY DISEASE
     Dosage: 18 MCG
     Route: 055
     Dates: start: 20060101
  2. PLAVIX [Concomitant]
     Indication: CARDIAC DISORDER
     Dosage: 75 MG
  3. ADVAIR DISKUS 100/50 [Concomitant]
     Indication: CHRONIC OBSTRUCTIVE PULMONARY DISEASE
  4. ALBUTEROL [Concomitant]
     Indication: CHRONIC OBSTRUCTIVE PULMONARY DISEASE
  5. SYNTHROID [Concomitant]
     Indication: THYROID DISORDER
     Dosage: 100 MCG
  6. AVALIDE [Concomitant]
     Indication: BLOOD PRESSURE INCREASED
  7. NEXIUM [Concomitant]
     Indication: GASTROOESOPHAGEAL REFLUX DISEASE
     Dosage: 40 MG
  8. TOPROL-XL [Concomitant]
     Indication: BLOOD PRESSURE INCREASED
     Dosage: 50 MG
  9. ISORBIDE MN [Concomitant]
     Indication: CARDIAC DISORDER
     Dosage: 30 MG
  10. SIMVASTATIN [Concomitant]
     Indication: BLOOD CHOLESTEROL INCREASED
     Dosage: 40 MG
  11. ASPIRIN [Concomitant]
     Indication: CARDIAC DISORDER
     Dosage: 325 MG
  12. MULTIVITAMIN AND CALCIUM W/D [Concomitant]
  13. MECLIZINE [Concomitant]
     Indication: VERTIGO

REACTIONS (6)
  - CHEST PAIN [None]
  - CHILLS [None]
  - CORONARY ARTERY OCCLUSION [None]
  - COUGH [None]
  - LUNG DISORDER [None]
  - LUNG INFECTION [None]
